FAERS Safety Report 9450442 (Version 1)
Quarter: 2013Q3

REPORT INFORMATION
  Report Type: Spontaneous
  Country: US (occurrence: US)
  Receive Date: 20130809
  Receipt Date: 20130809
  Transmission Date: 20140515
  Serious: No
  Sender: FDA-Public Use
  Company Number: US-009507513-1308USA004225

PATIENT
  Age: 13 Year
  Sex: Female

DRUGS (1)
  1. CORICIDIN HBP COUGH AND COLD [Suspect]
     Indication: EUPHORIC MOOD
     Dosage: 25 DF, ONCE
     Route: 048

REACTIONS (3)
  - Feeling drunk [Unknown]
  - Intentional overdose [Unknown]
  - Off label use [Unknown]
